FAERS Safety Report 8393883-4 (Version None)
Quarter: 2012Q2

REPORT INFORMATION
  Report Type: 
  Country: None (occurrence: None)
  Receive Date: 20120516
  Receipt Date: 20120508
  Transmission Date: 20120825
  Serious: Yes (Hospitalization, Disabling)
  Sender: FDA-Public Use
  Company Number: 2012SP024606

PATIENT
  Age: 30 Year
  Sex: Female
  Weight: 100 kg

DRUGS (1)
  1. NUVARING [Suspect]
     Indication: CONTRACEPTION
     Dates: end: 20090101

REACTIONS (3)
  - VON WILLEBRAND'S FACTOR ACTIVITY INCREASED [None]
  - THROMBOSIS [None]
  - PULMONARY EMBOLISM [None]
